FAERS Safety Report 5034749-7 (Version None)
Quarter: 2006Q2

REPORT INFORMATION
  Report Type: 
  Country: None (occurrence: None)
  Receive Date: 20060621
  Receipt Date: 20060608
  Transmission Date: 20061013
  Serious: Yes (Other)
  Sender: FDA-Public Use
  Company Number: 14169

PATIENT
  Age: 65 Year
  Sex: Male

DRUGS (15)
  1. METHYLENE BLUE [Suspect]
     Indication: PARATHYROIDECTOMY
     Dosage: 7.5 MG/KG OTHER
     Route: 050
  2. INSULIN [Concomitant]
  3. QUININE SULFATE [Concomitant]
  4. OMEPRAZOLE [Concomitant]
  5. CLOPIDOGREL [Concomitant]
  6. ATORVASTATIN CALCIUM [Concomitant]
  7. ALFACALCIDOL [Concomitant]
  8. CITALOPRAM [Concomitant]
  9. ALUMINUM HYDROXIDE [Concomitant]
  10. SILDENAFIL [Concomitant]
  11. PROPOFOL [Concomitant]
  12. FENTANYL TRANSDERMAL SYSTEM [Concomitant]
  13. ATRACURIUM BESYLATE [Concomitant]
  14. REMIFENTANIL [Concomitant]
  15. SEVOFLURANE [Concomitant]

REACTIONS (22)
  - ACIDOSIS [None]
  - AGITATION [None]
  - BLOOD LACTIC ACID INCREASED [None]
  - BLOOD POTASSIUM INCREASED [None]
  - BUNDLE BRANCH BLOCK LEFT [None]
  - CALCIUM IONISED DECREASED [None]
  - CARDIAC OUTPUT DECREASED [None]
  - CHILLS [None]
  - CONFUSIONAL STATE [None]
  - DEPRESSED LEVEL OF CONSCIOUSNESS [None]
  - DISORIENTATION [None]
  - DRUG TOXICITY [None]
  - ELECTROCARDIOGRAM ST SEGMENT DEPRESSION [None]
  - HAEMODIALYSIS [None]
  - HYPERCAPNIA [None]
  - HYPERHIDROSIS [None]
  - HYPERTHERMIA MALIGNANT [None]
  - INFUSION RELATED REACTION [None]
  - OXYGEN SATURATION DECREASED [None]
  - POST PROCEDURAL COMPLICATION [None]
  - SINUS TACHYCARDIA [None]
  - VOMITING [None]
